FAERS Safety Report 25622139 (Version 1)
Quarter: 2025Q3

REPORT INFORMATION
  Report Type: Report from Study
  Country: US (occurrence: US)
  Receive Date: 20250730
  Receipt Date: 20250730
  Transmission Date: 20251020
  Serious: Yes (Death, Other)
  Sender: JOHNSON AND JOHNSON
  Company Number: US-JNJFOC-20250732142

PATIENT
  Age: 27 Year
  Sex: Male

DRUGS (2)
  1. REMICADE [Suspect]
     Active Substance: INFLIXIMAB
     Indication: Crohn^s disease
     Route: 041
     Dates: start: 2022
  2. INFLIXIMAB [Suspect]
     Active Substance: INFLIXIMAB
     Indication: Crohn^s disease
     Route: 065

REACTIONS (8)
  - Death [Fatal]
  - Organ failure [Not Recovered/Not Resolved]
  - Seizure [Unknown]
  - Hepatic enzyme increased [Unknown]
  - Chest pain [Unknown]
  - Hypertension [Unknown]
  - Herpes zoster [Unknown]
  - Rash [Unknown]

NARRATIVE: CASE EVENT DATE: 20230101
